FAERS Safety Report 17861932 (Version 3)
Quarter: 2020Q3

REPORT INFORMATION
  Report Type: Spontaneous
  Country: US (occurrence: US)
  Receive Date: 20200604
  Receipt Date: 20200714
  Transmission Date: 20201103
  Serious: Yes (Hospitalization, Other)
  Sender: FDA-Public Use
  Company Number: US-GILEAD-2020-0469014

PATIENT
  Age: 43 Year
  Sex: Male
  Weight: 129.71 kg

DRUGS (29)
  1. NOREPINEPHRINE. [Suspect]
     Active Substance: NOREPINEPHRINE
     Indication: PRODUCT USED FOR UNKNOWN INDICATION
     Dosage: UNK
     Route: 042
     Dates: start: 20200520, end: 20200616
  2. D5LRS [Concomitant]
     Dosage: 125 ML/HR
     Route: 042
     Dates: start: 20200520, end: 20200521
  3. INSULIN REGULAR HM [Concomitant]
     Active Substance: INSULIN NOS
     Dosage: 7 UNITS
     Dates: start: 20200520, end: 20200520
  4. ALBUTEROL HFA [Concomitant]
     Active Substance: ALBUTEROL SULFATE
     Dosage: 2 PUFF
     Route: 055
     Dates: start: 20200518, end: 20200521
  5. BUPROPION. [Concomitant]
     Active Substance: BUPROPION
     Dosage: 300 MG
     Route: 048
     Dates: start: 20200520, end: 20200521
  6. BUSPIRONE [Concomitant]
     Active Substance: BUSPIRONE HYDROCHLORIDE
     Dosage: 10 MG
     Route: 050
     Dates: start: 20200520, end: 20200530
  7. REMDESIVIR. [Suspect]
     Active Substance: REMDESIVIR
     Indication: COVID-19
     Dosage: 200 MG, ONCE
     Route: 042
     Dates: start: 20200520, end: 20200521
  8. HEPARIN [Concomitant]
     Active Substance: HEPARIN SODIUM
     Dosage: UNK
     Route: 042
     Dates: start: 20200519, end: 20200614
  9. AMLODIPINE [Concomitant]
     Active Substance: AMLODIPINE BESYLATE
     Dosage: 5 MG
     Route: 048
     Dates: start: 20200519, end: 20200520
  10. CEFTRIAXONE. [Concomitant]
     Active Substance: CEFTRIAXONE
     Dosage: 2 G
     Route: 042
     Dates: start: 20200518, end: 20200520
  11. PROPOFOL. [Concomitant]
     Active Substance: PROPOFOL
     Dosage: UNK
     Route: 042
     Dates: start: 20200520, end: 20200524
  12. FAMOTIDINE. [Concomitant]
     Active Substance: FAMOTIDINE
     Dosage: 20 MG
     Route: 042
     Dates: start: 20200518, end: 20200615
  13. LORAZEPAM. [Concomitant]
     Active Substance: LORAZEPAM
     Dosage: 1 MG
     Route: 042
     Dates: start: 20200519, end: 20200611
  14. NS [Concomitant]
     Active Substance: SODIUM CHLORIDE
     Dosage: 100 ML/HR
     Route: 042
     Dates: start: 20200518, end: 20200520
  15. ZOSYN [Concomitant]
     Active Substance: PIPERACILLIN SODIUM\TAZOBACTAM SODIUM
     Dosage: 2.25 G
     Route: 042
     Dates: start: 20200520, end: 20200529
  16. ASCORBIC ACID. [Concomitant]
     Active Substance: ASCORBIC ACID
     Dosage: 500 MG
     Route: 048
     Dates: start: 20200518, end: 20200617
  17. KETAMINE [Concomitant]
     Active Substance: KETAMINE
     Dosage: 100 MG
     Route: 042
     Dates: start: 20200520, end: 20200520
  18. MIDAZOLAM. [Concomitant]
     Active Substance: MIDAZOLAM
     Dosage: 5 MG
     Route: 042
     Dates: start: 20200520, end: 20200520
  19. ATORVASTATIN [Concomitant]
     Active Substance: ATORVASTATIN
     Dosage: 20 MG
     Route: 048
     Dates: start: 20200519, end: 20200521
  20. CHOLECALCIFEROL [Concomitant]
     Active Substance: CHOLECALCIFEROL
     Dosage: 1000 UNITS
     Route: 050
     Dates: start: 20200518, end: 20200617
  21. NOVOLOG [Concomitant]
     Active Substance: INSULIN ASPART
     Dosage: UNK
     Route: 058
     Dates: start: 20200518, end: 20200520
  22. MORPHINE [Concomitant]
     Active Substance: MORPHINE
     Dosage: 2 MG
     Route: 042
     Dates: start: 20200519, end: 20200527
  23. ROCURONIUM [Concomitant]
     Active Substance: ROCURONIUM BROMIDE
     Dosage: 100 MG
     Route: 042
     Dates: start: 20200520, end: 20200520
  24. ZINC SULFATE. [Concomitant]
     Active Substance: ZINC SULFATE
     Dosage: 220 MG
     Route: 048
     Dates: start: 20200518, end: 20200617
  25. INSULIN DETEMIR [Concomitant]
     Active Substance: INSULIN DETEMIR
     Dosage: 9 UNITS
     Route: 058
     Dates: start: 20200519, end: 20200520
  26. FENTANYL. [Concomitant]
     Active Substance: FENTANYL
     Dosage: UNK
     Route: 042
     Dates: start: 20200520, end: 20200528
  27. INSULIN REGULAR HM [Concomitant]
     Active Substance: INSULIN NOS
     Dosage: UNK
     Route: 042
     Dates: start: 20200520, end: 20200524
  28. THIAMINE. [Concomitant]
     Active Substance: THIAMINE
     Dosage: 100 MG
     Route: 048
     Dates: start: 20200519, end: 20200617
  29. DOXYCYCLINE. [Concomitant]
     Active Substance: DOXYCYCLINE
     Dosage: 100 MG
     Route: 042
     Dates: start: 20200520, end: 20200605

REACTIONS (4)
  - Renal failure [Not Recovered/Not Resolved]
  - Dyspnoea [Not Recovered/Not Resolved]
  - Blood creatinine increased [Not Recovered/Not Resolved]
  - Hyperphosphataemia [Recovered/Resolved]

NARRATIVE: CASE EVENT DATE: 20200521
